FAERS Safety Report 4553639-7 (Version None)
Quarter: 2004Q4

REPORT INFORMATION
  Report Type: 
  Country: None (occurrence: None)
  Receive Date: 20041227
  Receipt Date: 20041020
  Transmission Date: 20050328
  Serious: No
  Sender: FDA-Public Use
  Company Number: 04P-163-0277971-00

PATIENT
  Age: 58 Year
  Sex: Male
  Weight: 87.5442 kg

DRUGS (9)
  1. HUMIRA [Suspect]
     Indication: RHEUMATOID ARTHRITIS
     Dosage: 40 MG, 1 IN 2 WK, SUBCUTANEOUS
     Route: 058
     Dates: start: 20041012
  2. SULFASALAZINE [Concomitant]
  3. PREDNISONE [Concomitant]
  4. COLCHICINE [Concomitant]
  5. TICLOPIDINE HCL [Concomitant]
  6. IBUPROFEN [Concomitant]
  7. DIVON [Concomitant]
  8. BUPROPION HYDROCHLORIDE [Concomitant]
  9. METHOTREXATE [Concomitant]

REACTIONS (2)
  - EYELID OEDEMA [None]
  - PHOTOPHOBIA [None]
